FAERS Safety Report 10924384 (Version 2)
Quarter: 2015Q2

REPORT INFORMATION
  Report Type: Spontaneous
  Country: US (occurrence: US)
  Receive Date: 20150318
  Receipt Date: 20150524
  Transmission Date: 20150821
  Serious: No
  Sender: FDA-Public Use
  Company Number: US-JNJFOC-20140603658

PATIENT
  Age: 75 Year
  Sex: Female
  Weight: 64.41 kg

DRUGS (1)
  1. NIZORAL A-D [Suspect]
     Active Substance: KETOCONAZOLE
     Indication: SEBORRHOEIC DERMATITIS
     Dosage: A QUARTER- 50 CENT PIECE, 2-3 TIMES PER WEEK
     Route: 061

REACTIONS (1)
  - Intentional product misuse [Unknown]
